FAERS Safety Report 5480189-6 (Version None)
Quarter: 2007Q4

REPORT INFORMATION
  Report Type: 
  Country: None (occurrence: None)
  Receive Date: 20071009
  Receipt Date: 20070924
  Transmission Date: 20080405
  Serious: Yes (Hospitalization, Other)
  Sender: FDA-Public Use
  Company Number: FR-ELI_LILLY_AND_COMPANY-FR200709005989

PATIENT
  Age: 62 Year
  Sex: Female

DRUGS (1)
  1. EVISTA [Suspect]
     Route: 048
     Dates: end: 20070101

REACTIONS (1)
  - BREAST NEOPLASM [None]
